FAERS Safety Report 25608380 (Version 1)
Quarter: 2025Q3

REPORT INFORMATION
  Report Type: Spontaneous
  Country: US (occurrence: US)
  Receive Date: 20250726
  Receipt Date: 20250726
  Transmission Date: 20251021
  Serious: Yes (Death, Life-Threatening, Other)
  Sender: AMGEN
  Company Number: US-AMGEN-USASP2025142425

PATIENT
  Age: 63 Year
  Sex: Female

DRUGS (4)
  1. PREDNISONE [Suspect]
     Active Substance: PREDNISONE
     Indication: COVID-19 pneumonia
     Dosage: 10 MILLIGRAM, QD
     Route: 065
  2. PREDNISONE [Suspect]
     Active Substance: PREDNISONE
     Dosage: 40 MILLIGRAM, BID
     Route: 065
  3. PIRTOBRUTINIB [Concomitant]
     Active Substance: PIRTOBRUTINIB
     Indication: Mantle cell lymphoma
  4. CORTICOSTEROID NOS [Concomitant]
     Active Substance: CORTICOSTEROID NOS

REACTIONS (14)
  - Respiratory arrest [Fatal]
  - Pneumocystis jirovecii pneumonia [Unknown]
  - Septic shock [Unknown]
  - SARS-CoV-2 antibody test positive [Unknown]
  - Pancytopenia [Unknown]
  - Intestinal pseudo-obstruction [Unknown]
  - Acute respiratory distress syndrome [Unknown]
  - Acute kidney injury [Unknown]
  - Gastrointestinal haemorrhage [Unknown]
  - Pulmonary mucormycosis [Unknown]
  - Mucormycosis [Unknown]
  - Klebsiella infection [Unknown]
  - Sinusitis fungal [Unknown]
  - Off label use [Unknown]
